FAERS Safety Report 4537382-6 (Version None)
Quarter: 2004Q4

REPORT INFORMATION
  Report Type: 
  Country: None (occurrence: None)
  Receive Date: 20041223
  Receipt Date: 20041216
  Transmission Date: 20050328
  Serious: Yes (Hospitalization)
  Sender: FDA-Public Use
  Company Number: GB-ABBOTT-04P-167-0283834-00

PATIENT
  Age: 16 Year
  Sex: Male

DRUGS (3)
  1. DEPAKENE [Suspect]
     Indication: BIPOLAR DISORDER
     Route: 048
     Dates: start: 20040609
  2. DEPAKENE [Suspect]
     Dates: start: 20040101
  3. QUETIAPINE [Suspect]
     Indication: BIPOLAR DISORDER
     Route: 048
     Dates: start: 20040722

REACTIONS (3)
  - BLOOD THYROID STIMULATING HORMONE INCREASED [None]
  - LEUKOPENIA [None]
  - NEUTROPENIA [None]
